FAERS Safety Report 23333452 (Version 1)
Quarter: 2023Q4

REPORT INFORMATION
  Report Type: Report from Study
  Country: NL (occurrence: NL)
  Receive Date: 20231222
  Receipt Date: 20231222
  Transmission Date: 20240110
  Serious: Yes (Death, Other)
  Sender: FDA-Public Use
  Company Number: NL-VER-202300099

PATIENT
  Age: 75 Year
  Sex: Male

DRUGS (2)
  1. TRIPTORELIN PAMOATE [Suspect]
     Active Substance: TRIPTORELIN PAMOATE
     Indication: Prostate cancer
     Dosage: 22.5 MG SOLV 2 ML, 1.00 X PER 6 MONTHS (22.5 MG,6 M)
     Route: 030
     Dates: start: 20200217
  2. TRIPTORELIN PAMOATE [Suspect]
     Active Substance: TRIPTORELIN PAMOATE
     Indication: Prostate cancer
     Dosage: 22.5 MG SOLV 2 ML, 1.00 X PER 6 MONTHS (22.5 MG,6 M)
     Route: 030
     Dates: start: 20230511

REACTIONS (2)
  - Death [Fatal]
  - Hot flush [Not Recovered/Not Resolved]
